FAERS Safety Report 21212345 (Version 1)
Quarter: 2022Q3

REPORT INFORMATION
  Report Type: Spontaneous
  Country: US (occurrence: US)
  Receive Date: 20220815
  Receipt Date: 20220815
  Transmission Date: 20221026
  Serious: No
  Sender: FDA-Public Use
  Company Number: US-PFIZER INC-202201052082

PATIENT
  Age: 41 Year
  Sex: Female

DRUGS (1)
  1. PAXLOVID [Suspect]
     Active Substance: NIRMATRELVIR\RITONAVIR
     Indication: COVID-19 treatment
     Dosage: UNK
     Dates: start: 20220806, end: 20220807

REACTIONS (8)
  - Anxiety [Recovering/Resolving]
  - Depression [Recovering/Resolving]
  - Psychiatric symptom [Recovering/Resolving]
  - Insomnia [Recovering/Resolving]
  - Muscle spasms [Recovering/Resolving]
  - Muscle tightness [Recovering/Resolving]
  - Myalgia [Recovering/Resolving]
  - Incorrect product administration duration [Unknown]

NARRATIVE: CASE EVENT DATE: 20220806
